FAERS Safety Report 22141959 (Version 1)
Quarter: 2023Q1

REPORT INFORMATION
  Report Type: Spontaneous
  Country: US (occurrence: None)
  Receive Date: 20230326
  Receipt Date: 20230326
  Transmission Date: 20230417
  Serious: No
  Sender: FDA-Public Use
  Company Number: None

PATIENT
  Sex: 0

DRUGS (1)
  1. DEXTROAMPHET SACCHARAT, AMPHET ASPARTATE, DEXTROAMPHET SULFATE AND AMP [Suspect]
     Active Substance: AMPHETAMINE ASPARTATE\AMPHETAMINE SULFATE\DEXTROAMPHETAMINE SACCHARATE\DEXTROAMPHETAMINE SULFATE
     Dosage: OTHER QUANTITY : 60 TABLET(S);?FREQUENCY : TWICE A DAY;?
     Route: 048
     Dates: start: 20220901, end: 20221130

REACTIONS (10)
  - Product physical consistency issue [None]
  - Drug ineffective [None]
  - Fatigue [None]
  - Anxiety [None]
  - Myalgia [None]
  - Arthralgia [None]
  - Headache [None]
  - Feeling abnormal [None]
  - Product substitution issue [None]
  - Product use complaint [None]

NARRATIVE: CASE EVENT DATE: 20230215
